FAERS Safety Report 5089200-8 (Version None)
Quarter: 2006Q3

REPORT INFORMATION
  Report Type: 
  Country: None (occurrence: None)
  Receive Date: 20060727
  Receipt Date: 20060530
  Transmission Date: 20061208
  Serious: Yes (Other)
  Sender: FDA-Public Use
  Company Number: 2006071368

PATIENT
  Age: 46 Year
  Sex: Female
  Weight: 72.5755 kg

DRUGS (7)
  1. LYRICA [Suspect]
     Indication: PAIN
     Dosage: 300 MG (150 MG 2 IN 1 D), UNKNOWN
     Route: 065
     Dates: start: 20060221
  2. ACTOS [Suspect]
     Indication: DIABETES MELLITUS
     Route: 065
  3. VITAMIN D [Suspect]
     Indication: ILL-DEFINED DISORDER
     Dosage: 50,000 UNITS (1 WK)
     Route: 065
  4. OXYCODONE HCL [Suspect]
     Indication: ILL-DEFINED DISORDER
     Route: 065
     Dates: start: 20060301
  5. CYMBALTA [Suspect]
     Indication: PAIN
     Route: 065
  6. CIPRO XR [Suspect]
     Indication: ILL-DEFINED DISORDER
     Dosage: 1000 MG (1 D ),
     Route: 065
     Dates: start: 20060301
  7. PROMETHAZINE [Concomitant]

REACTIONS (5)
  - DRUG INTERACTION [None]
  - OEDEMA [None]
  - PAIN [None]
  - VISION BLURRED [None]
  - WEIGHT INCREASED [None]
